FAERS Safety Report 18077917 (Version 1)
Quarter: 2020Q3

REPORT INFORMATION
  Report Type: Spontaneous
  Country: US (occurrence: US)
  Receive Date: 20200727
  Receipt Date: 20200727
  Transmission Date: 20201103
  Serious: No
  Sender: FDA-Public Use
  Company Number: US-ABBVIE-19K-163-2858242-00

PATIENT
  Age: 84 Year
  Sex: Female

DRUGS (3)
  1. MARINOL [Suspect]
     Active Substance: DRONABINOL
     Indication: AGITATION
     Dosage: PRN
     Route: 048
     Dates: start: 201811
  2. ATIVAN [Concomitant]
     Active Substance: LORAZEPAM
     Indication: AGITATION
  3. MARINOL [Suspect]
     Active Substance: DRONABINOL
     Indication: DEMENTIA ALZHEIMER^S TYPE

REACTIONS (2)
  - Off label use [Not Recovered/Not Resolved]
  - Drug ineffective [Not Recovered/Not Resolved]
